FAERS Safety Report 20041434 (Version 2)
Quarter: 2021Q4

REPORT INFORMATION
  Report Type: Spontaneous
  Country: FR (occurrence: FR)
  Receive Date: 20211108
  Receipt Date: 20211118
  Transmission Date: 20220304
  Serious: Yes (Death, Life-Threatening, Hospitalization, Other)
  Sender: FDA-Public Use
  Company Number: FR-MLMSERVICE-20211006-3154167-1

PATIENT
  Age: 61 Year
  Sex: Male

DRUGS (8)
  1. ACYCLOVIR [Suspect]
     Active Substance: ACYCLOVIR
     Indication: Meningitis
     Dosage: 10 MILLIGRAM/KILOGRAM, ONCE A DAY
     Route: 065
  2. AMOXICILLIN [Suspect]
     Active Substance: AMOXICILLIN
     Indication: Meningitis
     Dosage: 200 MILLIGRAM/KILOGRAM, ONCE A DAY
     Route: 065
  3. IVERMECTIN [Suspect]
     Active Substance: IVERMECTIN
     Indication: Strongyloidiasis
     Dosage: 200 MICROGRAM/KILOGRAM, ONCE A DAY
     Route: 048
  4. IVERMECTIN [Suspect]
     Active Substance: IVERMECTIN
     Indication: Disseminated strongyloidiasis
  5. CEFOTAXIME [Suspect]
     Active Substance: CEFOTAXIME SODIUM
     Indication: Meningitis
     Dosage: 200 MILLIGRAM/KILOGRAM
     Route: 042
  6. CEFOTAXIME [Suspect]
     Active Substance: CEFOTAXIME SODIUM
     Indication: Meningitis Escherichia
     Dosage: 300 MILLIGRAM/KILOGRAM, ONCE A DAY
     Route: 065
  7. DEXAMETHASONE [Suspect]
     Active Substance: DEXAMETHASONE
     Indication: Meningitis
     Dosage: 40 MILLIGRAM, ONCE A DAY
     Route: 065
  8. DEXAMETHASONE [Suspect]
     Active Substance: DEXAMETHASONE
     Dosage: 10 MILLIGRAM, FOUR TIMES/DAY
     Route: 065

REACTIONS (15)
  - Multiple organ dysfunction syndrome [Fatal]
  - Pulmonary alveolar haemorrhage [Fatal]
  - Disseminated strongyloidiasis [Fatal]
  - Strongyloidiasis [Fatal]
  - Acute respiratory failure [Fatal]
  - Nervous system disorder [Fatal]
  - Paradoxical drug reaction [Fatal]
  - Haemodynamic instability [Fatal]
  - Acute respiratory distress syndrome [Fatal]
  - Coma [Fatal]
  - Treatment failure [Fatal]
  - Haemoptysis [Fatal]
  - Eosinophilia [Fatal]
  - Condition aggravated [Fatal]
  - Drug ineffective [Fatal]
